FAERS Safety Report 17113176 (Version 3)
Quarter: 2020Q2

REPORT INFORMATION
  Report Type: Report from Study
  Country: None (occurrence: US)
  Receive Date: 20191204
  Receipt Date: 20200522
  Transmission Date: 20200713
  Serious: Yes (Other)
  Sender: FDA-Public Use
  Company Number: US-ABBVIE-19K-163-3178837-00

PATIENT
  Sex: Male
  Weight: 99.88 kg

DRUGS (1)
  1. HUMIRA [Suspect]
     Active Substance: ADALIMUMAB
     Indication: RHEUMATOID ARTHRITIS
     Route: 058
     Dates: start: 2013, end: 201912

REACTIONS (8)
  - Excessive cerumen production [Not Recovered/Not Resolved]
  - Hypoacusis [Not Recovered/Not Resolved]
  - Precancerous cells present [Recovering/Resolving]
  - Otorrhoea [Not Recovered/Not Resolved]
  - Otorrhoea [Recovered/Resolved]
  - Oesophageal polyp [Recovering/Resolving]
  - Ear infection [Not Recovered/Not Resolved]
  - Ear infection [Recovered/Resolved]

NARRATIVE: CASE EVENT DATE: 2019
